FAERS Safety Report 23405710 (Version 1)
Quarter: 2024Q1

REPORT INFORMATION
  Report Type: Spontaneous
  Country: NL (occurrence: NL)
  Receive Date: 20240116
  Receipt Date: 20240116
  Transmission Date: 20240410
  Serious: Yes (Other)
  Sender: FDA-Public Use
  Company Number: NL-FreseniusKabi-FK202400661

PATIENT
  Age: 70 Year
  Sex: Female

DRUGS (1)
  1. OXALIPLATIN [Suspect]
     Active Substance: OXALIPLATIN
     Indication: Product used for unknown indication
     Dosage: 2ND CYCLE
     Route: 065

REACTIONS (3)
  - Anaphylactic reaction [Unknown]
  - Angioedema [Unknown]
  - Stridor [Unknown]
